FAERS Safety Report 22170296 (Version 2)
Quarter: 2023Q2

REPORT INFORMATION
  Report Type: Report from Study
  Country: US (occurrence: US)
  Receive Date: 20230404
  Receipt Date: 20230408
  Transmission Date: 20230721
  Serious: No
  Sender: FDA-Public Use
  Company Number: US-002147023-NVSC2023US072985

PATIENT
  Sex: Female

DRUGS (3)
  1. ENTRESTO [Suspect]
     Active Substance: SACUBITRIL\VALSARTAN
     Indication: Product used for unknown indication
     Dosage: 1 DOSAGE FORM, BID
     Route: 048
     Dates: start: 202211
  2. CARVEDILOL [Suspect]
     Active Substance: CARVEDILOL
     Indication: Product used for unknown indication
     Dosage: 3 MG, BID
     Route: 065
  3. CARVEDILOL [Suspect]
     Active Substance: CARVEDILOL
     Dosage: UNK (DECREASED DOSE)
     Route: 065

REACTIONS (7)
  - COVID-19 [Recovering/Resolving]
  - Sinusitis [Recovering/Resolving]
  - Gastroenteritis viral [Recovering/Resolving]
  - Heart rate decreased [Recovering/Resolving]
  - Weight fluctuation [Unknown]
  - Fatigue [Unknown]
  - Hypotension [Recovering/Resolving]
